FAERS Safety Report 17847727 (Version 2)
Quarter: 2021Q4

REPORT INFORMATION
  Report Type: Report from Study
  Country: NL (occurrence: NL)
  Receive Date: 20200601
  Receipt Date: 20211221
  Transmission Date: 20220303
  Serious: Yes (Other)
  Sender: FDA-Public Use
  Company Number: NL-002147023-NVSC2020NL134266

PATIENT
  Age: 69 Year
  Sex: Female

DRUGS (3)
  1. CYTARABINE [Suspect]
     Active Substance: CYTARABINE
     Dosage: 4000 MG, QD
     Route: 065
     Dates: start: 20200412
  2. CYTARABINE [Suspect]
     Active Substance: CYTARABINE
     Dosage: 4000 MG, QD
     Route: 065
     Dates: start: 20200417
  3. RYDAPT [Suspect]
     Active Substance: MIDOSTAURIN
     Dosage: 100 MG, 1X/DAY
     Route: 065
     Dates: start: 20200424

REACTIONS (2)
  - Ejection fraction decreased [Not Recovered/Not Resolved]
  - Fatigue [Not Recovered/Not Resolved]

NARRATIVE: CASE EVENT DATE: 20200508
